FAERS Safety Report 4301916-7 (Version None)
Quarter: 2004Q1

REPORT INFORMATION
  Report Type: 
  Country: None (occurrence: None)
  Receive Date: 20040223
  Receipt Date: 20031105
  Transmission Date: 20041129
  Serious: Yes (Other)
  Sender: FDA-Public Use
  Company Number: BW-BRISTOL-MYERS SQUIBB COMPANY-12427753

PATIENT

DRUGS (3)
  1. STAVUDINE [Suspect]
     Indication: HIV INFECTION
     Dates: start: 20030416
  2. LAMIVUDINE [Suspect]
     Indication: HIV INFECTION
     Dates: start: 20030416
  3. NEVIRAPINE [Suspect]
     Indication: HIV INFECTION
     Dates: start: 20030416

REACTIONS (2)
  - NEUROPATHY PERIPHERAL [None]
  - NEUTROPENIA [None]
